FAERS Safety Report 8575761-0 (Version None)
Quarter: 2012Q3

REPORT INFORMATION
  Report Type: 
  Country: None (occurrence: None)
  Receive Date: 20120807
  Receipt Date: 20120806
  Transmission Date: 20120928
  Serious: Yes (Disabling, Other)
  Sender: FDA-Public Use
  Company Number: PHEH2007US02901

PATIENT
  Sex: Female
  Weight: 68.027 kg

DRUGS (9)
  1. ATENOLOL [Concomitant]
  2. XELODA [Concomitant]
  3. MAXZIDE [Concomitant]
  4. ZOMETA [Suspect]
  5. ZESTRIL [Concomitant]
  6. COZAAR [Concomitant]
  7. AREDIA [Suspect]
  8. FOSAMAX [Suspect]
  9. DECADRON                                /NET/ [Concomitant]

REACTIONS (9)
  - PAIN [None]
  - OSTEONECROSIS OF JAW [None]
  - INJURY [None]
  - BREAST CANCER [None]
  - ANXIETY [None]
  - ILL-DEFINED DISORDER [None]
  - METASTASES TO CENTRAL NERVOUS SYSTEM [None]
  - ANHEDONIA [None]
  - BONE MARROW DISORDER [None]
